FAERS Safety Report 9354670 (Version 1)
Quarter: 2013Q2

REPORT INFORMATION
  Report Type: Spontaneous
  Country: BE (occurrence: BE)
  Receive Date: 20130619
  Receipt Date: 20130619
  Transmission Date: 20140414
  Serious: Yes (Other)
  Sender: FDA-Public Use
  Company Number: BE-009507513-1306BEL003765

PATIENT
  Age: 58 Year
  Sex: Male

DRUGS (3)
  1. TEMOZOLOMIDE [Suspect]
     Indication: GLIOBLASTOMA
     Dosage: 75 MG/M2/DAY
     Route: 048
     Dates: start: 201005, end: 2010
  2. TEMOZOLOMIDE [Suspect]
     Dosage: 150 MG/M2/DAY FOR 5 DAYS OF A 28-DAY CYCLE, OR 300 MG PER CYCLE
     Route: 048
     Dates: start: 201009, end: 201011
  3. TEMOZOLOMIDE [Suspect]
     Dosage: 100 MG/M2/DAY FOR 21 CONSECUTIVE DAYS EVERY 28-DAY CYCLE
     Route: 048
     Dates: start: 201011, end: 201112

REACTIONS (5)
  - B-cell unclassifiable lymphoma high grade [Unknown]
  - Lymphopenia [Unknown]
  - Dysplasia [Unknown]
  - Neutropenia [Recovered/Resolved]
  - Leukopenia [Unknown]
